FAERS Safety Report 7654596-7 (Version None)
Quarter: 2011Q3

REPORT INFORMATION
  Report Type: 
  Country: None (occurrence: None)
  Receive Date: 20110803
  Receipt Date: 20110726
  Transmission Date: 20111222
  Serious: Yes (Death, Hospitalization, Other)
  Sender: FDA-Public Use
  Company Number: NL-GILEAD-2011-0042241

PATIENT
  Sex: Male

DRUGS (4)
  1. VITAMIN K ANTAGONISTS [Concomitant]
     Indication: CARDIOVASCULAR EVENT PROPHYLAXIS
  2. VIREAD [Suspect]
     Indication: HEPATITIS B
     Route: 048
     Dates: start: 20110706, end: 20110719
  3. KONAKION [Concomitant]
     Indication: HAEMORRHAGE
     Route: 048
     Dates: start: 20110712, end: 20110713
  4. RITUXIMAB [Concomitant]
     Indication: B-CELL LYMPHOMA

REACTIONS (9)
  - PNEUMOCOCCAL SEPSIS [None]
  - STATUS EPILEPTICUS [None]
  - ASPIRATION [None]
  - ACUTE HEPATIC FAILURE [None]
  - EPILEPSY [None]
  - GENERAL PHYSICAL HEALTH DETERIORATION [None]
  - FALL [None]
  - HEAD INJURY [None]
  - SUBDURAL HAEMATOMA [None]
